FAERS Safety Report 5624445-7 (Version None)
Quarter: 2008Q1

REPORT INFORMATION
  Report Type: 
  Country: None (occurrence: None)
  Receive Date: 20080213
  Receipt Date: 20080130
  Transmission Date: 20080703
  Serious: Yes (Hospitalization)
  Sender: FDA-Public Use
  Company Number: FR-AMGEN-UK263708

PATIENT
  Age: 28 Year
  Sex: Male

DRUGS (3)
  1. KINERET [Suspect]
     Indication: DRUG USE FOR UNKNOWN INDICATION
     Route: 065
     Dates: start: 20050701
  2. CORTICOSTEROIDS [Concomitant]
     Dates: start: 20000101
  3. METHOTREXATE [Concomitant]
     Dates: start: 20000101

REACTIONS (3)
  - ACUTE RESPIRATORY DISTRESS SYNDROME [None]
  - SHOCK [None]
  - SYSTEMIC INFLAMMATORY RESPONSE SYNDROME [None]
